FAERS Safety Report 8835472 (Version 2)
Quarter: 2013Q1

REPORT INFORMATION
  Report Type: Report from Study
  Country: JP (occurrence: JP)
  Receive Date: 20121011
  Receipt Date: 20130305
  Transmission Date: 20140127
  Serious: Yes (Other)
  Sender: FDA-Public Use
  Company Number: PHHY2012JP089520

PATIENT
  Age: 47 Year
  Sex: Male
  Weight: 74.83 kg

DRUGS (4)
  1. GLIVEC [Suspect]
     Indication: CHRONIC MYELOID LEUKAEMIA
     Dosage: 400 MG
     Route: 048
     Dates: start: 20100224, end: 20100331
  2. GLIVEC [Suspect]
     Dosage: 300 MG, UNK
     Route: 048
     Dates: start: 20100401, end: 20110410
  3. GLIVEC [Suspect]
     Dosage: 300 MG, UNK
     Route: 048
     Dates: start: 20110610, end: 20120328
  4. NO TREATMENT RECEIVED [Suspect]

REACTIONS (3)
  - Haemarthrosis [Unknown]
  - Platelet count decreased [Unknown]
  - Nausea [Recovered/Resolved]
